FAERS Safety Report 13713150 (Version 1)
Quarter: 2017Q3

REPORT INFORMATION
  Report Type: Report from Study
  Country: CN (occurrence: CN)
  Receive Date: 20170704
  Receipt Date: 20170704
  Transmission Date: 20171127
  Serious: Yes (Other)
  Sender: FDA-Public Use
  Company Number: CN-ROCHE-1955473

PATIENT
  Sex: Female

DRUGS (4)
  1. BEVACIZUMAB. [Suspect]
     Active Substance: BEVACIZUMAB
     Indication: OVARIAN CANCER
     Dosage: 5 MG/KG GIVEN INTRAVENOUSLY ON SECOND DAY EVERY CYCLE OF TREATMENT OR 200 MG GIVEN INTRAPERITONEALLY
     Route: 065
  2. PACLITAXEL. [Suspect]
     Active Substance: PACLITAXEL
     Indication: OVARIAN CANCER
     Dosage: 135-175 MG/M2
     Route: 042
  3. CARBOPLATIN. [Suspect]
     Active Substance: CARBOPLATIN
     Indication: OVARIAN CANCER
     Dosage: 300-400 MG/M2
     Route: 042
  4. DEXAMETHASONE. [Concomitant]
     Active Substance: DEXAMETHASONE
     Indication: PREMEDICATION
     Route: 065

REACTIONS (6)
  - Diarrhoea [Unknown]
  - Hypertension [Unknown]
  - Bone marrow failure [Unknown]
  - Nausea [Unknown]
  - Vomiting [Unknown]
  - Arrhythmia [Recovered/Resolved]
